FAERS Safety Report 6759442-1 (Version None)
Quarter: 2010Q2

REPORT INFORMATION
  Report Type: 
  Country: None (occurrence: None)
  Receive Date: 20100603
  Receipt Date: 20100525
  Transmission Date: 20101027
  Serious: Yes (Death, Hospitalization, Other)
  Sender: FDA-Public Use
  Company Number: 2010US001807

PATIENT
  Age: 57 Year
  Sex: Female

DRUGS (5)
  1. PROGRAF [Suspect]
     Indication: LUNG TRANSPLANT
     Dosage: 1.5 MG, BID,
     Dates: start: 20050801
  2. PREDNISONE TAB [Suspect]
     Indication: LUNG TRANSPLANT
     Dosage: 10 MG, UID/QD,
  3. CYTOXAN [Suspect]
     Indication: LUNG TRANSPLANT
     Dosage: 25 MG, UID/QD,
  4. RITUXIMAB (RITUXIMAB) [Suspect]
     Indication: TRANSPLANT REJECTION
     Dosage: 375 MG/M2, UID/QD, IV NOS
     Route: 042
     Dates: start: 20070412
  5. RITUXIMAB (RITUXIMAB) [Suspect]
     Indication: TRANSPLANT REJECTION
     Dosage: 375 MG/M2, UID/QD, IV NOS
     Route: 042
     Dates: start: 20070419

REACTIONS (13)
  - ASTHENIA [None]
  - CAPILLARITIS [None]
  - FATIGUE [None]
  - HERPES SIMPLEX [None]
  - HUMAN HERPES VIRUS 6 SEROLOGY [None]
  - INFLAMMATION [None]
  - LUNG TRANSPLANT REJECTION [None]
  - MALAISE [None]
  - MENTAL STATUS CHANGES [None]
  - POLYNEUROPATHY [None]
  - SEPSIS [None]
  - UNRESPONSIVE TO STIMULI [None]
  - WEST NILE VIRAL INFECTION [None]
